FAERS Safety Report 7301938-8 (Version None)
Quarter: 2011Q1

REPORT INFORMATION
  Report Type: 
  Country: None (occurrence: None)
  Receive Date: 20110218
  Receipt Date: 20110211
  Transmission Date: 20110831
  Serious: Yes (Hospitalization)
  Sender: FDA-Public Use
  Company Number: US-ROCHE-759268

PATIENT
  Sex: Male

DRUGS (1)
  1. PEGASYS [Suspect]
     Route: 065

REACTIONS (4)
  - SKIN INFECTION [None]
  - RASH [None]
  - EYE IRRITATION [None]
  - SKIN DISCOLOURATION [None]
